FAERS Safety Report 13969963 (Version 1)
Quarter: 2017Q3

REPORT INFORMATION
  Report Type: Report from Study
  Country: JP (occurrence: JP)
  Receive Date: 20170914
  Receipt Date: 20170914
  Transmission Date: 20171128
  Serious: Yes (Other)
  Sender: FDA-Public Use
  Company Number: JP-ARIAD PHARMACEUTICALS, INC-2017JP007645

PATIENT
  Age: 48 Year
  Sex: Male
  Weight: 48 kg

DRUGS (7)
  1. ICLUSIG [Suspect]
     Active Substance: PONATINIB
     Indication: ACUTE LYMPHOCYTIC LEUKAEMIA
     Dosage: 45 MG, DAILY DOSE
     Route: 048
     Dates: start: 20170105, end: 20170115
  2. MIRACLID [Concomitant]
     Active Substance: ULINASTATIN
     Indication: PANCREATIC ENZYMES INCREASED
     Dosage: UNK
     Route: 065
  3. ICLUSIG [Suspect]
     Active Substance: PONATINIB
     Dosage: 15 MG, DAILY DOSE
     Route: 048
     Dates: start: 20170207, end: 20170227
  4. FLUCONAZOLE. [Concomitant]
     Active Substance: FLUCONAZOLE
     Indication: PROPHYLAXIS
     Dosage: UNK
     Route: 065
  5. ICLUSIG [Suspect]
     Active Substance: PONATINIB
     Dosage: 30 MG, DAILY DOSE
     Route: 048
     Dates: start: 20170407, end: 20170414
  6. ICLUSIG [Suspect]
     Active Substance: PONATINIB
     Dosage: 15 MG, DAILY DOSE
     Route: 048
     Dates: start: 20170116, end: 20170118
  7. ICLUSIG [Suspect]
     Active Substance: PONATINIB
     Dosage: 22.5 MG, DAILY DOSE
     Route: 048
     Dates: start: 20170228, end: 20170406

REACTIONS (2)
  - Pancreatic enzymes increased [Recovered/Resolved]
  - Pancreatitis [Recovered/Resolved]

NARRATIVE: CASE EVENT DATE: 20170118
